FAERS Safety Report 9656485 (Version 1)
Quarter: 2013Q4

REPORT INFORMATION
  Report Type: Spontaneous
  Country: JP (occurrence: None)
  Receive Date: 20131028
  Receipt Date: 20131028
  Transmission Date: 20140711
  Serious: Yes (Hospitalization)
  Sender: FDA-Public Use
  Company Number: FK201304734

PATIENT
  Age: 35 Year
  Sex: Female

DRUGS (4)
  1. CYTARABINE [Suspect]
     Indication: DIFFUSE LARGE B-CELL LYMPHOMA
     Dosage: INTRAVENOUS (NOT OTHERWISE SPECIFIED)
     Route: 042
  2. METHOTREXATE (METHOTREXATE) (METHOTREXATE) [Suspect]
     Indication: DIFFUSE LARGE B-CELL LYMPHOMA
     Dosage: INTRAVENOUS (NOT OTHERWISE SEPCIFIED)
     Route: 042
  3. DEXAMETHASONE (DEXAMETHASONE) [Concomitant]
  4. PREDNISOLONE (PREDNISOLONE) [Concomitant]

REACTIONS (6)
  - Myelopathy [None]
  - Demyelination [None]
  - Mineral deficiency [None]
  - Hypovitaminosis [None]
  - Central nervous system lymphoma [None]
  - Neoplasm recurrence [None]
